FAERS Safety Report 10389795 (Version 1)
Quarter: 2014Q3

REPORT INFORMATION
  Report Type: Spontaneous
  Country: US (occurrence: None)
  Receive Date: 20140813
  Receipt Date: 20140813
  Transmission Date: 20150326
  Serious: Yes (Hospitalization, Other)
  Sender: FDA-Public Use
  Company Number: AUR-APL-2014-08538

PATIENT
  Age: 79 Year
  Sex: Female
  Weight: 63.5 kg

DRUGS (15)
  1. SYNTHROID [Concomitant]
     Active Substance: LEVOTHYROXINE SODIUM
  2. HYDROCHLOROTHIAZIDE (HYDROCHLOROTHIAZIDE) [Concomitant]
     Active Substance: HYDROCHLOROTHIAZIDE
  3. LISINOPRIL. [Suspect]
     Active Substance: LISINOPRIL
     Indication: HYPOTENSION
     Route: 048
  4. NEXIUM [Suspect]
     Active Substance: ESOMEPRAZOLE MAGNESIUM
     Indication: HIATUS HERNIA
     Route: 048
     Dates: end: 20140601
  5. ASPIRIN (ACETYLSALICYLIC ACID) [Concomitant]
     Active Substance: ASPIRIN
  6. TRAMADOL (TRAMADOL) [Concomitant]
     Active Substance: TRAMADOL
  7. LEVETIRACETAM (LEVETIRACETAM) [Suspect]
     Active Substance: LEVETIRACETAM
     Indication: CONVULSION
  8. IRON (IRON) [Concomitant]
     Active Substance: IRON
  9. NEXIUM [Suspect]
     Active Substance: ESOMEPRAZOLE MAGNESIUM
     Indication: GASTROOESOPHAGEAL REFLUX DISEASE
     Route: 048
     Dates: end: 20140601
  10. TYLENOL [Concomitant]
     Active Substance: ACETAMINOPHEN
  11. LUTEIN (XANTOFYL) [Concomitant]
  12. MIRALAX (MACROGOL) [Concomitant]
  13. VITAMIN D (ERGOCALCIFEROL) [Concomitant]
     Active Substance: ERGOCALCIFEROL
  14. VITAMINS NOS (VITAMINS NOS) [Concomitant]
     Active Substance: VITAMINS
  15. ZYRTEC [Concomitant]
     Active Substance: CETIRIZINE HYDROCHLORIDE

REACTIONS (15)
  - Intentional product misuse [None]
  - Rectal haemorrhage [None]
  - Cardiac arrest [None]
  - Dyspnoea [None]
  - Insomnia [None]
  - Spinal disorder [None]
  - Throat irritation [None]
  - Memory impairment [None]
  - Back pain [None]
  - Constipation [None]
  - Pain [None]
  - Convulsion [None]
  - Dysphonia [None]
  - Drug dose omission [None]
  - Adverse drug reaction [None]

NARRATIVE: CASE EVENT DATE: 20140331
